FAERS Safety Report 8379570-7 (Version None)
Quarter: 2012Q2

REPORT INFORMATION
  Report Type: 
  Country: None (occurrence: None)
  Receive Date: 20120523
  Receipt Date: 20120516
  Transmission Date: 20120825
  Serious: Yes (Other)
  Sender: FDA-Public Use
  Company Number: US-JNJFOC-20061006250

PATIENT
  Sex: Male

DRUGS (6)
  1. RISPERDAL [Suspect]
     Indication: ANXIETY
     Route: 048
  2. RISPERDAL [Suspect]
     Indication: THINKING ABNORMAL
     Route: 048
  3. RISPERDAL [Suspect]
     Indication: INCOHERENT
     Route: 048
  4. RISPERDAL [Suspect]
     Indication: DEPRESSION
     Route: 048
  5. RISPERDAL [Suspect]
     Indication: BIPOLAR DISORDER
     Route: 048
  6. RISPERDAL [Suspect]
     Indication: MANIA
     Route: 048

REACTIONS (3)
  - TYPE 1 DIABETES MELLITUS [None]
  - WEIGHT INCREASED [None]
  - HYPERGLYCAEMIA [None]
